FAERS Safety Report 6938288-5 (Version None)
Quarter: 2010Q3

REPORT INFORMATION
  Report Type: 
  Country: None (occurrence: None)
  Receive Date: 20100817
  Receipt Date: 20100806
  Transmission Date: 20110219
  Serious: Yes (Other)
  Sender: FDA-Public Use
  Company Number: 2010SP042642

PATIENT
  Age: 10 Year
  Sex: Male
  Weight: 32 kg

DRUGS (1)
  1. BETAMETHASONE SODIUM PHOSPHATE [Suspect]
     Indication: DERMATITIS ATOPIC
     Dosage: 1 ML; ONCE; IM
     Route: 030
     Dates: start: 20090911, end: 20090911

REACTIONS (1)
  - ANAPHYLACTOID REACTION [None]
